FAERS Safety Report 8224848-0 (Version None)
Quarter: 2012Q1

REPORT INFORMATION
  Report Type: 
  Country: None (occurrence: None)
  Receive Date: 20120321
  Receipt Date: 20120313
  Transmission Date: 20120608
  Serious: Yes (Other)
  Sender: FDA-Public Use
  Company Number: US-ROCHE-1023053

PATIENT
  Sex: Male

DRUGS (5)
  1. COPEGUS [Suspect]
     Indication: HEPATITIS C
     Dosage: DIVIDED DOSES
     Route: 048
     Dates: start: 20111014, end: 20111215
  2. COPEGUS [Suspect]
     Dates: start: 20120105
  3. PEGASYS [Suspect]
     Indication: HEPATITIS C
     Route: 058
     Dates: start: 20111014, end: 20111215
  4. INCIVEK [Suspect]
     Indication: HEPATITIS C
     Dates: start: 20120105
  5. PEGASYS [Suspect]
     Dates: start: 20120105

REACTIONS (8)
  - CONVULSION [None]
  - INSOMNIA [None]
  - DRUG INEFFECTIVE [None]
  - HEADACHE [None]
  - DRY SKIN [None]
  - ERYTHEMA [None]
  - PRURITUS [None]
  - RASH [None]
